FAERS Safety Report 18938476 (Version 1)
Quarter: 2021Q1

REPORT INFORMATION
  Report Type: Report from Study
  Country: CN (occurrence: CN)
  Receive Date: 20210224
  Receipt Date: 20210224
  Transmission Date: 20210420
  Serious: Yes (Other)
  Sender: FDA-Public Use
  Company Number: CN-CASPER PHARMA LLC-2021CAS000085

PATIENT

DRUGS (2)
  1. ALUMINUM PHOSPHATE GEL [Suspect]
     Active Substance: ALUMINUM PHOSPHATE
     Indication: OESOPHAGEAL STENOSIS
     Dosage: UNK
     Route: 065
  2. NEOMYCIN, POLYMYXIN B, HYDROCORTIONE [Suspect]
     Active Substance: HYDROCORTISONE\NEOMYCIN\POLYMYXIN B
     Indication: OESOPHAGEAL STENOSIS
     Dosage: UNK
     Route: 048

REACTIONS (2)
  - Perforation [Unknown]
  - Atrial fibrillation [Unknown]
